FAERS Safety Report 7404947-3 (Version None)
Quarter: 2011Q2

REPORT INFORMATION
  Report Type: 
  Country: None (occurrence: None)
  Receive Date: 20110411
  Receipt Date: 20110404
  Transmission Date: 20111010
  Serious: Yes (Death, Hospitalization)
  Sender: FDA-Public Use
  Company Number: US-ELI_LILLY_AND_COMPANY-CA201102007664

PATIENT
  Sex: Male

DRUGS (14)
  1. GABAPENTIN [Concomitant]
     Indication: PAIN
     Dosage: UNK, UNK
  2. SOFLAX [Concomitant]
     Indication: CONSTIPATION
     Dosage: UNK
  3. PANTOLOC [Concomitant]
     Indication: PAIN
     Dosage: UNK
  4. PACLITAXEL [Suspect]
     Indication: PANCREATIC CARCINOMA
     Dosage: 187 MG, OTHER
     Route: 065
     Dates: start: 20110216, end: 20110224
  5. DIOVAN [Concomitant]
     Indication: HYPERTENSION
  6. METFORMIN [Concomitant]
     Indication: DIABETES MELLITUS
     Dosage: UNK, UNK
  7. HYDROMORPHONE HCL [Concomitant]
     Indication: PAIN
     Dosage: UNK, UNK
     Dates: start: 20110131
  8. CREON [Concomitant]
     Indication: PANCREATIC ENZYMES DECREASED
  9. LIPITOR [Concomitant]
     Indication: HYPERCHOLESTEROLAEMIA
     Dosage: UNK, UNK
  10. DOMPERIDONE [Concomitant]
     Indication: PAIN
     Dosage: UNK, UNK
  11. SENOKOT [Concomitant]
     Indication: CONSTIPATION
     Dosage: UNK, UNK
  12. GEMCITABINE HYDROCHLORIDE [Suspect]
     Indication: PANCREATIC CARCINOMA
     Dosage: 1490 MG, OTHER
     Route: 065
     Dates: start: 20110216, end: 20110224
  13. HYDROMORPHONE HCL [Concomitant]
     Indication: PAIN
     Dosage: UNK, UNK
     Dates: start: 20110131
  14. EZETIMIBE [Concomitant]
     Indication: HYPERCHOLESTEROLAEMIA

REACTIONS (2)
  - SEPSIS [None]
  - CEREBRAL ISCHAEMIA [None]
